FAERS Safety Report 15821307 (Version 3)
Quarter: 2021Q1

REPORT INFORMATION
  Report Type: Spontaneous
  Country: US (occurrence: US)
  Receive Date: 20190114
  Receipt Date: 20210329
  Transmission Date: 20210419
  Serious: Yes (Other)
  Sender: FDA-Public Use
  Company Number: US-PFIZER INC-2019016050

PATIENT
  Age: 26 Year
  Sex: Female

DRUGS (12)
  1. ONDANSETRON HCL [Concomitant]
     Active Substance: ONDANSETRON HYDROCHLORIDE
  2. SOMAVERT [Suspect]
     Active Substance: PEGVISOMANT
     Indication: ACROMEGALY
     Dosage: 30 MG, DAILY
     Route: 058
     Dates: start: 2014
  3. DEXTROAMPHETAMINE [DEXAMFETAMINE] [Concomitant]
     Active Substance: DEXTROAMPHETAMINE
  4. TOZINAMERAN. [Concomitant]
     Active Substance: TOZINAMERAN
     Indication: COVID-19 IMMUNISATION
  5. OXYCODONE HYDROCHLORIDE. [Concomitant]
     Active Substance: OXYCODONE HYDROCHLORIDE
  6. SOMAVERT [Suspect]
     Active Substance: PEGVISOMANT
     Indication: SOTOS^ SYNDROME
     Dosage: 20 MG, UNK
  7. PASIREOTIDE. [Suspect]
     Active Substance: PASIREOTIDE
     Dosage: 60 MG, UNK
  8. TYLENOL [Concomitant]
     Active Substance: ACETAMINOPHEN
  9. SANDOSTATIN LAR DEPOT [Concomitant]
     Active Substance: OCTREOTIDE ACETATE
  10. NORETHINDRONE ACETATE AND ETHINYL ESTRADIOL [Concomitant]
     Active Substance: ETHINYL ESTRADIOL\NORETHINDRONE ACETATE
  11. VENLAFAXINE HCL [Concomitant]
     Active Substance: VENLAFAXINE HYDROCHLORIDE
  12. METFORMIN HCL [Concomitant]
     Active Substance: METFORMIN HYDROCHLORIDE

REACTIONS (6)
  - Diabetes mellitus [Unknown]
  - Alanine aminotransferase increased [Unknown]
  - Insulin-like growth factor increased [Unknown]
  - Blood growth hormone increased [Unknown]
  - Bronchitis [Unknown]
  - Glycosylated haemoglobin increased [Unknown]
